FAERS Safety Report 8166576-6 (Version None)
Quarter: 2012Q1

REPORT INFORMATION
  Report Type: 
  Country: None (occurrence: None)
  Receive Date: 20120227
  Receipt Date: 20120220
  Transmission Date: 20120608
  Serious: Yes (Death, Life-Threatening, Hospitalization)
  Sender: FDA-Public Use
  Company Number: FR-SANOFI-AVENTIS-2012SA010944

PATIENT
  Age: 68 Year
  Sex: Female

DRUGS (14)
  1. FASTURTEC [Suspect]
     Route: 065
     Dates: start: 20111228
  2. VANCOMYCIN [Suspect]
     Route: 065
     Dates: start: 20120105
  3. CYTARABINE [Suspect]
     Route: 065
     Dates: start: 20111228
  4. PIPERACILLIN AND TAZOBACTAM [Suspect]
     Route: 065
     Dates: start: 20111228, end: 20120104
  5. EMEND [Suspect]
     Route: 065
     Dates: start: 20111229
  6. ZOFRAN [Concomitant]
  7. NOXAFIL [Concomitant]
  8. LEVOFLOXACIN [Suspect]
     Route: 065
     Dates: start: 20111229
  9. AMIODARONE HCL [Suspect]
     Route: 042
     Dates: start: 20111230
  10. IDARUBICIN HCL [Suspect]
     Route: 065
     Dates: start: 20111228
  11. VALACICLOVIR [Suspect]
     Route: 065
     Dates: start: 20111228
  12. HYDREA [Suspect]
     Route: 065
     Dates: start: 20111226, end: 20111228
  13. METOCLOPRAMIDE [Concomitant]
  14. ZYVOX [Suspect]
     Route: 065
     Dates: start: 20111230

REACTIONS (3)
  - RENAL FAILURE ACUTE [None]
  - TOXIC SKIN ERUPTION [None]
  - BONE MARROW FAILURE [None]
